FAERS Safety Report 12937340 (Version 1)
Quarter: 2016Q4

REPORT INFORMATION
  Report Type: Report from Study
  Country: US (occurrence: US)
  Receive Date: 20161114
  Receipt Date: 20161114
  Transmission Date: 20170207
  Serious: Yes (Other)
  Sender: FDA-Public Use
  Company Number: US-JNJFOC-20161112162

PATIENT
  Sex: Male

DRUGS (18)
  1. WARFARIN [Concomitant]
     Active Substance: WARFARIN
  2. PROSCAR [Concomitant]
     Active Substance: FINASTERIDE
  3. PROCHLORPERAZINE EDISYLATE. [Concomitant]
     Active Substance: PROCHLORPERAZINE EDISYLATE
  4. ALLEGRA [Concomitant]
     Active Substance: FEXOFENADINE HYDROCHLORIDE
  5. IPRATROPIUM BROMIDE W/SALBUTAMOL SULFATE [Concomitant]
  6. ATIVAN [Concomitant]
     Active Substance: LORAZEPAM
  7. ZOFRAN [Concomitant]
     Active Substance: ONDANSETRON HYDROCHLORIDE
  8. RITUXIMAB [Concomitant]
     Active Substance: RITUXIMAB
  9. MUCINEX [Concomitant]
     Active Substance: GUAIFENESIN
  10. ALLOPURINOL. [Concomitant]
     Active Substance: ALLOPURINOL
  11. SYMBICORT [Concomitant]
     Active Substance: BUDESONIDE\FORMOTEROL FUMARATE DIHYDRATE
  12. CARAFATE [Concomitant]
     Active Substance: SUCRALFATE
  13. HYDROCODONE BITARTRATE W/PARACETAMOL [Concomitant]
     Active Substance: ACETAMINOPHEN\HYDROCODONE BITARTRATE
  14. NEXIUM [Concomitant]
     Active Substance: ESOMEPRAZOLE MAGNESIUM
  15. IMBRUVICA [Suspect]
     Active Substance: IBRUTINIB
     Indication: CHRONIC LYMPHOCYTIC LEUKAEMIA
     Route: 048
     Dates: start: 20140311, end: 201610
  16. ALBUTEROL. [Concomitant]
     Active Substance: ALBUTEROL
  17. VALACYCLOVIR [Concomitant]
     Active Substance: VALACYCLOVIR HYDROCHLORIDE
  18. TORSEMIDE. [Concomitant]
     Active Substance: TORSEMIDE

REACTIONS (2)
  - Lower limb fracture [Unknown]
  - Fall [Unknown]
